FAERS Safety Report 9378602 (Version 2)
Quarter: 2013Q3

REPORT INFORMATION
  Report Type: Spontaneous
  Country: JP (occurrence: JP)
  Receive Date: 20130702
  Receipt Date: 20130820
  Transmission Date: 20140515
  Serious: Yes (Hospitalization, Other)
  Sender: FDA-Public Use
  Company Number: JP-ROCHE-1243488

PATIENT
  Age: 87 Year
  Sex: Female

DRUGS (4)
  1. LUCENTIS [Suspect]
     Indication: AGE-RELATED MACULAR DEGENERATION
     Route: 050
     Dates: start: 20110824
  2. LUCENTIS [Suspect]
     Route: 050
     Dates: start: 20110921
  3. LUCENTIS [Suspect]
     Route: 050
     Dates: start: 20111019
  4. LUCENTIS [Suspect]
     Route: 050
     Dates: start: 20130619

REACTIONS (4)
  - Cerebrovascular accident [Unknown]
  - Hemiplegia [Unknown]
  - Hemiparesis [Unknown]
  - Age-related macular degeneration [Unknown]
